FAERS Safety Report 5527339-0 (Version None)
Quarter: 2007Q4

REPORT INFORMATION
  Report Type: 
  Country: None (occurrence: None)
  Receive Date: 20071128
  Receipt Date: 20071123
  Transmission Date: 20080405
  Serious: Yes (Life-Threatening, Hospitalization)
  Sender: FDA-Public Use
  Company Number: B0496669A

PATIENT
  Age: 58 Year
  Sex: Male

DRUGS (8)
  1. AVANDIA [Suspect]
     Dosage: 4MG PER DAY
     Route: 048
     Dates: start: 20070812, end: 20070820
  2. ORABET [Concomitant]
     Dosage: 850MG TWICE PER DAY
     Route: 048
     Dates: start: 19970101
  3. ENALAPRIL [Concomitant]
     Dosage: 10MG PER DAY
     Route: 065
     Dates: start: 19970101
  4. ACETYLSALICYLIC ACID SRT [Concomitant]
     Dosage: 75MG PER DAY
     Route: 048
     Dates: start: 19970101
  5. GLIMEPIRIDE [Concomitant]
     Dosage: 4MG PER DAY
     Route: 065
  6. SIMVASTATIN [Concomitant]
     Dosage: 40MG PER DAY
     Route: 065
  7. SELO-ZOK [Concomitant]
     Dosage: 50MG PER DAY
     Route: 065
  8. PLAVIX [Concomitant]
     Dosage: 75MG PER DAY
     Route: 065

REACTIONS (3)
  - ACUTE MYOCARDIAL INFARCTION [None]
  - CARDIAC FAILURE [None]
  - INTRACARDIAC THROMBUS [None]
